FAERS Safety Report 9803335 (Version 1)
Quarter: 2014Q1

REPORT INFORMATION
  Report Type: Spontaneous
  Country: US (occurrence: US)
  Receive Date: 20140108
  Receipt Date: 20140108
  Transmission Date: 20141002
  Serious: Yes (Death, Hospitalization, Other)
  Sender: FDA-Public Use
  Company Number: US-UCBSA-108511

PATIENT
  Age: 32 Year
  Sex: Male

DRUGS (2)
  1. ACETAMINOPHEN /HYDROCODONE [Suspect]
     Dosage: ROUTE: UNKNOWN
  2. ETHANOL [Suspect]
     Dosage: ROUTE: UNKNOWN

REACTIONS (2)
  - Cardio-respiratory arrest [Fatal]
  - Completed suicide [Fatal]
